FAERS Safety Report 6691028-X (Version None)
Quarter: 2010Q2

REPORT INFORMATION
  Report Type: 
  Country: None (occurrence: None)
  Receive Date: 20100421
  Receipt Date: 20100412
  Transmission Date: 20101027
  Serious: Yes (Other)
  Sender: FDA-Public Use
  Company Number: US-ELI_LILLY_AND_COMPANY-US201002005338

PATIENT
  Sex: Male
  Weight: 123.36 kg

DRUGS (9)
  1. BYETTA [Suspect]
     Indication: TYPE 2 DIABETES MELLITUS
     Dosage: 5 UG, 2/D
     Dates: start: 20051001, end: 20051101
  2. BYETTA [Suspect]
     Dosage: 10 UG, UNK
     Dates: start: 20051101, end: 20091209
  3. GLUCOTROL XL [Concomitant]
     Dosage: 10 MG, UNK
  4. METFORMIN [Concomitant]
     Dosage: 1000 MG, 2/D
  5. AVANDIA [Concomitant]
     Dosage: 4 MG, 2/D
  6. CELEBREX [Concomitant]
     Dosage: 200 MG, UNK
  7. ACCURETIC [Concomitant]
     Dosage: UNK, DAILY (1/D)
  8. NEXIUM [Concomitant]
     Indication: GASTROOESOPHAGEAL REFLUX DISEASE
     Dosage: 40 MG, DAILY (1/D)
  9. DARVOCET-N 100 [Concomitant]
     Dosage: UNK, AS NEEDED

REACTIONS (7)
  - COLON ADENOMA [None]
  - COLONIC POLYP [None]
  - GASTRITIS [None]
  - GASTROOESOPHAGEAL REFLUX DISEASE [None]
  - HAEMORRHOIDS [None]
  - OESOPHAGEAL CARCINOMA [None]
  - WEIGHT DECREASED [None]
